FAERS Safety Report 25144740 (Version 1)
Quarter: 2025Q2

REPORT INFORMATION
  Report Type: Spontaneous
  Country: US (occurrence: None)
  Receive Date: 20250331
  Receipt Date: 20250331
  Transmission Date: 20250717
  Serious: No
  Sender: FDA-CTU
  Company Number: None

PATIENT

DRUGS (1)
  1. CHLORAL HYDRATE [Suspect]
     Active Substance: CHLORAL HYDRATE

REACTIONS (1)
  - Hospitalisation [None]
